FAERS Safety Report 5239052-8 (Version None)
Quarter: 2007Q1

REPORT INFORMATION
  Report Type: 
  Country: None (occurrence: None)
  Receive Date: 20070209
  Receipt Date: 20070129
  Transmission Date: 20070707
  Serious: Yes (Life-Threatening)
  Sender: FDA-Public Use
  Company Number: ADV2-07

PATIENT
  Age: 79 Year
  Sex: Male

DRUGS (13)
  1. TOBRAMYCIN [Suspect]
     Indication: DEVICE RELATED INFECTION
     Dosage: 14.4G, ONCE, IMPLANT
  2. TOBRAMYCIN [Suspect]
     Indication: JOINT ARTHROPLASTY
     Dosage: 14.4G, ONCE, IMPLANT
  3. TRAVOPROST EYE DROPS [Concomitant]
  4. TAMSULOSIN HCL [Concomitant]
  5. WARFARIN SODIUM [Concomitant]
  6. FUROSEMIDE [Concomitant]
  7. VERAPAMIL [Concomitant]
  8. POTASSIUM CHLORIDE [Concomitant]
  9. POLYETHYLENE GLYCOL IN WATER [Concomitant]
  10. MAGNESIUM HYDROXIDE TAB [Concomitant]
  11. CYCLOBENZAPRINE HCL [Concomitant]
  12. FLUTICASONE NASAL SPRAY [Concomitant]
  13. ALBUTEROL/IPRATROPIUM AND FLUNISOLIDE INHALERS [Concomitant]

REACTIONS (7)
  - ARTHRITIS INFECTIVE [None]
  - CONSTIPATION [None]
  - DEHYDRATION [None]
  - NAUSEA [None]
  - RENAL FAILURE ACUTE [None]
  - SURGICAL PROCEDURE REPEATED [None]
  - VOMITING [None]
